FAERS Safety Report 7717439-9 (Version None)
Quarter: 2011Q3

REPORT INFORMATION
  Report Type: 
  Country: None (occurrence: None)
  Receive Date: 20110830
  Receipt Date: 20110824
  Transmission Date: 20111222
  Serious: Yes (Death, Hospitalization)
  Sender: FDA-Public Use
  Company Number: GB-ASTELLAS-2011EU005663

PATIENT
  Age: 30 Year
  Sex: Male

DRUGS (3)
  1. TACROLIMUS [Suspect]
     Indication: RENAL TRANSPLANT
     Dosage: UNK
     Route: 065
  2. MYCOPHENOLIC ACID [Suspect]
     Indication: RENAL TRANSPLANT
     Dosage: UNK
     Route: 065
  3. PREDNISOLONE [Suspect]
     Indication: TRANSPLANT REJECTION
     Dosage: 200 MG, UNKNOWN/D
     Route: 048

REACTIONS (3)
  - ACUTE HEPATIC FAILURE [None]
  - HERPES SIMPLEX HEPATITIS [None]
  - HERPES ZOSTER DISSEMINATED [None]
